FAERS Safety Report 11615653 (Version 1)
Quarter: 2015Q4

REPORT INFORMATION
  Report Type: Report from Study
  Country: US (occurrence: US)
  Receive Date: 20151009
  Receipt Date: 20151009
  Transmission Date: 20160304
  Serious: Yes (Hospitalization, Other)
  Sender: FDA-Public Use
  Company Number: US-ABBVIE-15K-163-1474632-00

PATIENT
  Age: 42 Year
  Sex: Male

DRUGS (3)
  1. HUMIRA [Suspect]
     Active Substance: ADALIMUMAB
     Indication: ANKYLOSING SPONDYLITIS
     Route: 058
  2. TYLENOL [Concomitant]
     Active Substance: ACETAMINOPHEN
     Indication: PRODUCT USED FOR UNKNOWN INDICATION
  3. BACITRACIN. [Concomitant]
     Active Substance: BACITRACIN
     Indication: PRODUCT USED FOR UNKNOWN INDICATION

REACTIONS (7)
  - Intervertebral discitis [Recovering/Resolving]
  - Lumbar vertebral fracture [Recovering/Resolving]
  - Spinal cord oedema [Unknown]
  - Ankylosing spondylitis [Unknown]
  - Spinal cord compression [Recovering/Resolving]
  - Intervertebral disc degeneration [Not Recovered/Not Resolved]
  - Spinal column stenosis [Unknown]

NARRATIVE: CASE EVENT DATE: 20150825
